FAERS Safety Report 8153996-9 (Version None)
Quarter: 2012Q1

REPORT INFORMATION
  Report Type: 
  Country: None (occurrence: None)
  Receive Date: 20120221
  Receipt Date: 20120221
  Transmission Date: 20120608
  Serious: Yes (Life-Threatening)
  Sender: FDA-Public Use
  Company Number: None

PATIENT
  Age: 84 Year
  Sex: Female
  Weight: 70.306 kg

DRUGS (1)
  1. DOXAZOSIN MESYLATE [Suspect]
     Indication: URINARY TRACT INFECTION
     Dosage: 1.0 MG
     Route: 048
     Dates: start: 20111219, end: 20111226

REACTIONS (5)
  - FATIGUE [None]
  - DIARRHOEA [None]
  - PAIN [None]
  - SENSORY DISTURBANCE [None]
  - HYPOAESTHESIA [None]
